FAERS Safety Report 4921043-5 (Version None)
Quarter: 2006Q1

REPORT INFORMATION
  Report Type: 
  Country: None (occurrence: None)
  Receive Date: 20060223
  Receipt Date: 20051025
  Transmission Date: 20060701
  Serious: Yes (Hospitalization)
  Sender: FDA-Public Use
  Company Number: US-MERCK-0510USA09207

PATIENT
  Age: 51 Year
  Sex: Female
  Weight: 159 kg

DRUGS (9)
  1. VIOXX [Suspect]
     Indication: PAIN
     Route: 048
     Dates: start: 19990101, end: 20040301
  2. VIOXX [Suspect]
     Indication: OSTEOARTHRITIS
     Route: 048
     Dates: start: 19990101, end: 20040301
  3. LOTENSIN [Concomitant]
     Indication: HYPERTENSION
     Route: 065
     Dates: start: 19870101
  4. BENAZEPRIL HYDROCHLORIDE [Concomitant]
     Route: 065
  5. PROTONIX [Concomitant]
     Route: 065
  6. FLEXERIL [Concomitant]
     Indication: PAIN
     Route: 065
     Dates: start: 20020101
  7. GLUCOPHAGE [Concomitant]
     Indication: DIABETES MELLITUS
     Route: 065
     Dates: start: 19870101
  8. LASIX [Concomitant]
     Indication: OEDEMA PERIPHERAL
     Route: 065
     Dates: end: 20020101
  9. CELEBREX [Concomitant]
     Route: 065
     Dates: start: 19990101, end: 19990101

REACTIONS (2)
  - PULMONARY EMBOLISM [None]
  - THROMBOSIS [None]
